FAERS Safety Report 25257915 (Version 3)
Quarter: 2025Q4

REPORT INFORMATION
  Report Type: Report from Study
  Country: US (occurrence: US)
  Receive Date: 20250430
  Receipt Date: 20251205
  Transmission Date: 20260118
  Serious: Yes (Other)
  Sender: ABBVIE
  Company Number: US-ABBVIE-6248653

PATIENT
  Age: 65 Year
  Sex: Female

DRUGS (2)
  1. RINVOQ [Suspect]
     Active Substance: UPADACITINIB
     Indication: Rheumatoid arthritis
     Route: 048
  2. LEFLUNOMIDE [Concomitant]
     Active Substance: LEFLUNOMIDE
     Indication: Product used for unknown indication

REACTIONS (6)
  - Tendon rupture [Unknown]
  - Pain in extremity [Not Recovered/Not Resolved]
  - Rotator cuff syndrome [Recovering/Resolving]
  - Rheumatoid arthritis [Unknown]
  - Dyspepsia [Unknown]
  - Arthralgia [Unknown]

NARRATIVE: CASE EVENT DATE: 20251101
